FAERS Safety Report 25104776 (Version 1)
Quarter: 2025Q1

REPORT INFORMATION
  Report Type: Spontaneous
  Country: BE (occurrence: BE)
  Receive Date: 20250321
  Receipt Date: 20250321
  Transmission Date: 20250409
  Serious: Yes (Hospitalization, Other)
  Sender: CHEPLAPHARM
  Company Number: BE-EUROCEPT-EC20250046

PATIENT
  Age: 53 Year
  Sex: Male

DRUGS (21)
  1. QUETIAPINE [Suspect]
     Active Substance: QUETIAPINE
     Indication: Sleep disorder
     Dosage: EXTENDED RELEASE?DAILY DOSE: 200 MILLIGRAM
  2. QUETIAPINE [Suspect]
     Active Substance: QUETIAPINE
     Indication: Sleep disorder
     Dosage: QUETIAPINE 100 MG XR (EXTENDED RELEASE)?DAILY DOSE: 100 MILLIGRAM
  3. QUETIAPINE [Suspect]
     Active Substance: QUETIAPINE
     Indication: Sleep disorder
     Dosage: QUETIAPINE 100 MG XR (EXTENDED RELEASE) WAS INCREASED TO QUETIAPINE 200 MG IR (IMMEDIATE RELEASE)
  4. QUETIAPINE [Suspect]
     Active Substance: QUETIAPINE
     Indication: Sleep disorder
     Dosage: QUETIAPINE WAS FURTHER INCREASED TO 400 MG DAILY?DAILY DOSE: 400 MILLIGRAM
  5. QUETIAPINE [Suspect]
     Active Substance: QUETIAPINE
     Indication: Sleep disorder
     Dosage: QUETIAPINE DOSE WAS HALVED TO 200 MG?DAILY DOSE: 200 MILLIGRAM
  6. CLONAZEPAM [Suspect]
     Active Substance: CLONAZEPAM
  7. CLOZAPINE [Suspect]
     Active Substance: CLOZAPINE
     Indication: Psychotic disorder
     Dosage: CLOZAPINE 25 MG DAILY?DAILY DOSE: 25 MILLIGRAM
  8. CLOMIPRAMINE [Suspect]
     Active Substance: CLOMIPRAMINE
     Dosage: DAILY DOSE: 75 MILLIGRAM
  9. LORAZEPAM [Suspect]
     Active Substance: LORAZEPAM
     Indication: Agitation
  10. ACETAMINOPHEN [Suspect]
     Active Substance: ACETAMINOPHEN
  11. LIDOCAINE [Suspect]
     Active Substance: LIDOCAINE
     Indication: Pruritus
     Dosage: 700 MG TRANSDERMAL 1 TIME DAILY?DAILY DOSE: 700 MILLIGRAM
     Route: 062
  12. ESOMEPRAZOLE [Suspect]
     Active Substance: ESOMEPRAZOLE
     Dosage: ESOMEPRAZOLE 20 MG 1 TIME DAILY?DAILY DOSE: 20 MILLIGRAM
  13. IRON\VITAMINS [Suspect]
     Active Substance: IRON\VITAMINS
  14. DIETARY SUPPLEMENT [Suspect]
     Active Substance: DIETARY SUPPLEMENT
  15. FLUTICASONE FUROATE\VILANTEROL TRIFENATATE [Suspect]
     Active Substance: FLUTICASONE FUROATE\VILANTEROL TRIFENATATE
     Route: 055
  16. LOPERAMIDE [Suspect]
     Active Substance: LOPERAMIDE
  17. TRAMADOL [Suspect]
     Active Substance: TRAMADOL
     Indication: Pain
  18. IBUPROFEN [Suspect]
     Active Substance: IBUPROFEN
     Dosage: DAILY DOSE: 600 MILLIGRAM
  19. NALTREXONE [Suspect]
     Active Substance: NALTREXONE
     Dosage: NALTREXONE 50 MG DAILY?DAILY DOSE: 50 MILLIGRAM
  20. PERINDOPRIL [Concomitant]
     Active Substance: PERINDOPRIL
     Indication: Hypertension
     Dosage: DAILY DOSE: 5 MILLIGRAM
  21. TAMSULOSIN [Concomitant]
     Active Substance: TAMSULOSIN
     Dosage: TAMSULOSIN 0.4 MG 1 TIME DAILY ?DAILY DOSE: 0.4 MILLIGRAM

REACTIONS (9)
  - Loss of personal independence in daily activities [Unknown]
  - Inappropriate antidiuretic hormone secretion [Recovering/Resolving]
  - Suicidal ideation [Unknown]
  - Poisoning [Unknown]
  - Intellectual disability [Unknown]
  - Obsessive-compulsive disorder [Unknown]
  - Restlessness [Unknown]
  - Iron deficiency anaemia [Unknown]
  - Off label use [Not Recovered/Not Resolved]
